FAERS Safety Report 14258962 (Version 2)
Quarter: 2017Q4

REPORT INFORMATION
  Report Type: Report from Study
  Country: CR (occurrence: CR)
  Receive Date: 20171207
  Receipt Date: 20171230
  Transmission Date: 20180321
  Serious: Yes (Other)
  Sender: FDA-Public Use
  Company Number: PHHY2016CR170146

PATIENT
  Sex: Female
  Weight: 89 kg

DRUGS (7)
  1. GLIBENCLAMIDE [Concomitant]
     Active Substance: GLYBURIDE
     Indication: PRODUCT USED FOR UNKNOWN INDICATION
     Dosage: 5 MG, TID (1 TABLET THREE TIMES A DAY)
     Route: 048
  2. SANDOSTATIN LAR DEPOT [Suspect]
     Active Substance: OCTREOTIDE ACETATE
     Dosage: UNK
     Route: 065
     Dates: start: 201706
  3. IRBESARTAN. [Suspect]
     Active Substance: IRBESARTAN
     Indication: PRODUCT USED FOR UNKNOWN INDICATION
     Dosage: 150 MG, QD (1 TABLET DAILY)
     Route: 048
  4. BETAMETHASONE. [Concomitant]
     Active Substance: BETAMETHASONE
     Indication: PRODUCT USED FOR UNKNOWN INDICATION
     Dosage: UNK (4 PUFF EVERY 8 HOURS)
     Route: 055
  5. SANDOSTATIN LAR DEPOT [Suspect]
     Active Substance: OCTREOTIDE ACETATE
     Indication: LUNG NEOPLASM MALIGNANT
     Dosage: UNK
     Route: 065
     Dates: start: 201611
  6. METFORMIN [Concomitant]
     Active Substance: METFORMIN HYDROCHLORIDE
     Indication: PRODUCT USED FOR UNKNOWN INDICATION
     Dosage: 500 MG, TID (1 TABLET THREE TIMES A DAY)
     Route: 048
  7. SALBUTAMOL [Concomitant]
     Active Substance: ALBUTEROL
     Indication: PRODUCT USED FOR UNKNOWN INDICATION
     Route: 065

REACTIONS (13)
  - Lung neoplasm malignant [Unknown]
  - Bone pain [Unknown]
  - Diarrhoea [Unknown]
  - Ulcer [Unknown]
  - Haemorrhoids [Unknown]
  - Contrast media allergy [Unknown]
  - Emotional disorder [Unknown]
  - Abdominal distension [Unknown]
  - Fatigue [Unknown]
  - Arthralgia [Unknown]
  - Drug hypersensitivity [Unknown]
  - Off label use [Unknown]
  - Pain in extremity [Unknown]
